FAERS Safety Report 14535146 (Version 1)
Quarter: 2018Q1

REPORT INFORMATION
  Report Type: Spontaneous
  Country: US (occurrence: US)
  Receive Date: 20180215
  Receipt Date: 20180215
  Transmission Date: 20180509
  Serious: No
  Sender: FDA-Public Use
  Company Number: US-IPSEN BIOPHARMACEUTICALS, INC.-2016-04358

PATIENT
  Age: 48 Year
  Sex: Female

DRUGS (1)
  1. DYSPORT [Suspect]
     Active Substance: ABOBOTULINUMTOXINA
     Indication: SKIN WRINKLING
     Dosage: 50 IU
     Route: 030
     Dates: start: 20160505, end: 20160505

REACTIONS (8)
  - Product preparation error [Unknown]
  - Erythema [Recovered/Resolved]
  - Dyspnoea [Recovered/Resolved]
  - Eye swelling [Recovered/Resolved]
  - Paraesthesia [Recovered/Resolved]
  - Rash [Recovered/Resolved]
  - Dermatitis contact [Recovered/Resolved]
  - Oral pruritus [Recovered/Resolved]

NARRATIVE: CASE EVENT DATE: 201605
